FAERS Safety Report 7768986-5 (Version None)
Quarter: 2011Q3

REPORT INFORMATION
  Report Type: 
  Country: None (occurrence: None)
  Receive Date: 20110922
  Receipt Date: 20101216
  Transmission Date: 20111222
  Serious: No
  Sender: FDA-Public Use
  Company Number: US-ASTRAZENECA-2010SE59513

PATIENT
  Sex: Female

DRUGS (1)
  1. SEROQUEL [Suspect]
     Dosage: 1 TABLET
     Route: 048
     Dates: start: 20101201, end: 20101201

REACTIONS (7)
  - HEART RATE INCREASED [None]
  - PARALYSIS [None]
  - SPEECH DISORDER [None]
  - COLD SWEAT [None]
  - DYSPNOEA [None]
  - FATIGUE [None]
  - ACCIDENTAL EXPOSURE [None]
